FAERS Safety Report 15126177 (Version 1)
Quarter: 2018Q3

REPORT INFORMATION
  Report Type: Spontaneous
  Country: US (occurrence: US)
  Receive Date: 20180614
  Receipt Date: 20180614
  Transmission Date: 20181010
  Serious: Yes (Other)
  Sender: FDA-Public Use
  Company Number: None

PATIENT
  Age: 38 Year
  Sex: Male
  Weight: 97 kg

DRUGS (3)
  1. CARBOPLATIN 10MG/ML [Suspect]
     Active Substance: CARBOPLATIN
     Indication: GLIOBLASTOMA
     Dates: start: 20180516, end: 20180516
  2. DIPHENHYDRAMINE. [Concomitant]
     Active Substance: DIPHENHYDRAMINE
     Dates: start: 20180516, end: 20180516
  3. METHYLPREDNISOLONE. [Concomitant]
     Active Substance: METHYLPREDNISOLONE
     Dates: start: 20180516, end: 20180516

REACTIONS (4)
  - Dyspnoea [None]
  - Pruritus [None]
  - Tachycardia [None]
  - Flushing [None]

NARRATIVE: CASE EVENT DATE: 20180516
